FAERS Safety Report 5656049-4 (Version None)
Quarter: 2008Q1

REPORT INFORMATION
  Report Type: 
  Country: None (occurrence: None)
  Receive Date: 20080307
  Receipt Date: 20080227
  Transmission Date: 20080703
  Serious: Yes (Hospitalization)
  Sender: FDA-Public Use
  Company Number: US-PFIZER INC-2008019351

PATIENT
  Sex: Female
  Weight: 76.2 kg

DRUGS (6)
  1. VANTIN [Suspect]
     Indication: URINARY TRACT INFECTION
     Route: 042
     Dates: start: 20080201, end: 20080201
  2. VANTIN [Suspect]
     Indication: PNEUMONIA
  3. PREVACID [Concomitant]
  4. COUMADIN [Concomitant]
  5. DIURETICS [Concomitant]
  6. MECLIZINE [Concomitant]
     Indication: DIZZINESS

REACTIONS (7)
  - BURNING SENSATION [None]
  - CREATININE URINE INCREASED [None]
  - INCORRECT ROUTE OF DRUG ADMINISTRATION [None]
  - LIMB DISCOMFORT [None]
  - MALAISE [None]
  - PRURITUS [None]
  - RASH [None]
